FAERS Safety Report 17487321 (Version 1)
Quarter: 2020Q1

REPORT INFORMATION
  Report Type: Spontaneous
  Country: US (occurrence: US)
  Receive Date: 20200302
  Receipt Date: 20200302
  Transmission Date: 20200409
  Serious: No
  Sender: FDA-Public Use
  Company Number: None

PATIENT
  Age: 59 Year
  Sex: Male
  Weight: 69.75 kg

DRUGS (2)
  1. TAMSULOSIN 0.4 MG CAP ACT [Suspect]
     Active Substance: TAMSULOSIN HYDROCHLORIDE
     Indication: BENIGN PROSTATIC HYPERPLASIA
     Dosage: ?          QUANTITY:30 CAPSULE(S);?
     Route: 048
     Dates: start: 20200228, end: 20200302
  2. TADALAFIL. [Concomitant]
     Active Substance: TADALAFIL

REACTIONS (6)
  - Symptom recurrence [None]
  - Urinary retention [None]
  - Urine flow decreased [None]
  - Therapy non-responder [None]
  - Product quality issue [None]
  - Nocturia [None]

NARRATIVE: CASE EVENT DATE: 20200301
